FAERS Safety Report 6999946-X (Version None)
Quarter: 2010Q3

REPORT INFORMATION
  Report Type: 
  Country: None (occurrence: None)
  Receive Date: 20100920
  Receipt Date: 20100914
  Transmission Date: 20110219
  Serious: Yes (Life-Threatening)
  Sender: FDA-Public Use
  Company Number: JP-BAYER-201012802BYL

PATIENT
  Age: 59 Year
  Sex: Female

DRUGS (7)
  1. AVELOX [Suspect]
     Indication: PNEUMONIA
     Dosage: TOTAL DAILY DOSE: 400 MG  UNIT DOSE: 400 MG
     Route: 048
     Dates: start: 20100501, end: 20100507
  2. CRAVIT [Suspect]
     Indication: PNEUMONIA
     Route: 048
     Dates: start: 20100419, end: 20100421
  3. MUCOSOLVAN [Concomitant]
     Indication: PNEUMONIA
     Dosage: TOTAL DAILY DOSE: 45 MG
     Route: 048
     Dates: start: 20100430, end: 20100504
  4. RIMACTANE [Concomitant]
     Indication: PNEUMONIA
     Dosage: TOTAL DAILY DOSE: 450 MG
     Route: 048
     Dates: start: 20100501, end: 20100503
  5. SULBACILLIN [Concomitant]
     Indication: PNEUMONIA
     Dosage: TOTAL DAILY DOSE: 6 G
     Route: 041
     Dates: start: 20100430, end: 20100506
  6. KLARICID [Concomitant]
     Indication: PNEUMONIA
     Dosage: TOTAL DAILY DOSE: 800 MG
     Route: 048
     Dates: start: 20100428
  7. ZITHROMAC SR [Concomitant]
     Indication: PNEUMONIA
     Route: 048
     Dates: start: 20100430, end: 20100511

REACTIONS (1)
  - INTERSTITIAL LUNG DISEASE [None]
